FAERS Safety Report 7735011-1 (Version None)
Quarter: 2011Q3

REPORT INFORMATION
  Report Type: 
  Country: None (occurrence: None)
  Receive Date: 20110907
  Receipt Date: 20110902
  Transmission Date: 20111222
  Serious: Yes (Death)
  Sender: FDA-Public Use
  Company Number: TN-SANOFI-AVENTIS-2011SA056961

PATIENT
  Age: 71 Year
  Sex: Female

DRUGS (7)
  1. ASPEGIC 325 [Concomitant]
     Route: 048
     Dates: end: 20110506
  2. PLAVIX [Suspect]
     Indication: STENT PLACEMENT
     Route: 048
     Dates: start: 20101225, end: 20110506
  3. GLUCOPHAGE [Concomitant]
     Route: 048
     Dates: end: 20110506
  4. GLYBURIDE [Concomitant]
     Route: 048
     Dates: end: 20110506
  5. PLAVIX [Suspect]
     Indication: ACUTE CORONARY SYNDROME
     Route: 048
     Dates: start: 20101225, end: 20110506
  6. CAPTOPRIL [Concomitant]
     Route: 048
     Dates: end: 20110506
  7. FENOFIBRATE [Concomitant]
     Route: 048
     Dates: end: 20110506

REACTIONS (1)
  - SUDDEN DEATH [None]
